FAERS Safety Report 8558436-3 (Version None)
Quarter: 2012Q3

REPORT INFORMATION
  Report Type: 
  Country: None (occurrence: None)
  Receive Date: 20120801
  Receipt Date: 20120727
  Transmission Date: 20120928
  Serious: Yes (Death, Other)
  Sender: FDA-Public Use
  Company Number: PHHY2012US065996

PATIENT
  Age: 75 Year
  Sex: Male

DRUGS (10)
  1. CUBICIN [Suspect]
  2. POSACONAZOLE [Suspect]
     Indication: CANDIDIASIS
     Dosage: 400 MG, BID
  3. FLUDARABINE PHOSPHATE [Concomitant]
  4. LEVOFLOXACIN [Concomitant]
  5. VORICONAZOLE [Concomitant]
  6. CYTARABINE [Concomitant]
  7. FLUCONAZOLE [Concomitant]
  8. MEROPENEM [Suspect]
  9. VALTREX [Concomitant]
  10. CASPOFUNGIN ACETATE [Suspect]
     Indication: CANDIDIASIS

REACTIONS (3)
  - BRONCHOPNEUMONIA [None]
  - BACTERIAL INFECTION [None]
  - SEPTIC SHOCK [None]
